FAERS Safety Report 4921229-X (Version None)
Quarter: 2006Q1

REPORT INFORMATION
  Report Type: 
  Country: None (occurrence: None)
  Receive Date: 20060221
  Receipt Date: 20060210
  Transmission Date: 20060701
  Serious: Yes (Other)
  Sender: FDA-Public Use
  Company Number: 200610164BNE

PATIENT
  Age: 58 Year
  Sex: Female

DRUGS (2)
  1. MOXIFLOXACIN HCL [Suspect]
     Dosage: 400 MG, TOTAL DAILY, ORAL
     Route: 048
     Dates: start: 20060104, end: 20060118
  2. SYMBICORT (BUDESONIDE W/FORMOTEROL FUMARATE) [Suspect]
     Dosage: 800 UG, TOTAL DAILY, RESPIRATORY (INHALATION)
     Route: 055
     Dates: start: 20060104, end: 20060111

REACTIONS (4)
  - CHEILITIS [None]
  - DRY MOUTH [None]
  - LIP EXFOLIATION [None]
  - NAUSEA [None]
